FAERS Safety Report 14786793 (Version 1)
Quarter: 2018Q2

REPORT INFORMATION
  Report Type: Spontaneous
  Country: US (occurrence: US)
  Receive Date: 20180420
  Receipt Date: 20180420
  Transmission Date: 20180711
  Serious: No
  Sender: FDA-Public Use
  Company Number: PHEH2018US014024

PATIENT
  Sex: Female

DRUGS (1)
  1. PREDNISONE TABLETS USP [Suspect]
     Active Substance: PREDNISONE
     Indication: EYE DISORDER
     Dosage: UNK
     Route: 048
     Dates: start: 201711

REACTIONS (2)
  - Drug ineffective [Unknown]
  - Vision blurred [Unknown]
